FAERS Safety Report 6931868-2 (Version None)
Quarter: 2010Q3

REPORT INFORMATION
  Report Type: 
  Country: None (occurrence: None)
  Receive Date: 20100819
  Receipt Date: 20100809
  Transmission Date: 20110219
  Serious: Yes (Other)
  Sender: FDA-Public Use
  Company Number: JP-PFIZER INC-2010083243

PATIENT
  Age: 83 Year
  Sex: Male
  Weight: 56 kg

DRUGS (15)
  1. GENOTROPIN [Suspect]
     Indication: HYPOPITUITARISM
     Dosage: 0.1-0.2 MG 1X/DAY
     Route: 058
     Dates: start: 20080918, end: 20100623
  2. CORTRIL [Concomitant]
     Indication: HYPOPITUITARISM
     Dosage: 10 MG, 2X/DAY
     Route: 048
     Dates: start: 20070401
  3. CORTRIL [Concomitant]
     Indication: ADRENAL INSUFFICIENCY
  4. THYRADIN S [Concomitant]
     Indication: HYPOPITUITARISM
     Dosage: 75 MG, 1X/DAY
     Route: 048
     Dates: start: 20070401
  5. THYRADIN S [Concomitant]
     Indication: HYPOTHYROIDISM
  6. GASTER [Concomitant]
     Indication: GASTRIC ULCER
     Dosage: 10 MG, 2X/DAY
     Route: 048
  7. MAGNESIUM OXIDE HEAVY [Concomitant]
     Indication: CONSTIPATION
     Dosage: 0.5 G, 3X/DAY
     Route: 048
     Dates: start: 20080709
  8. CONIEL [Concomitant]
     Indication: HYPERTENSION
     Dosage: 4 MG, 1X/DAY
     Route: 048
     Dates: start: 20060915
  9. ITOROL [Concomitant]
     Indication: ANGINA PECTORIS
     Dosage: 20 MG, 2X/DAY
     Route: 048
     Dates: start: 20060912
  10. PLETAL [Concomitant]
     Indication: ARTERIOSCLEROSIS OBLITERANS
     Dosage: 100 MG, 2X/DAY
     Route: 048
  11. FRANDOL [Concomitant]
     Indication: ANGINA PECTORIS
     Dosage: 1SEET 1X/DAY
     Route: 062
     Dates: start: 20070301
  12. LENDORMIN [Concomitant]
     Indication: INSOMNIA
     Dosage: 0.25 MG, 1X/DAY
     Route: 048
  13. DEPAS [Concomitant]
     Indication: ANXIETY
     Dosage: 0.5 MG, 1X/DAY
     Route: 048
     Dates: start: 20071031
  14. LOXONIN [Concomitant]
     Indication: HEADACHE
     Dosage: 60 MG, AS NEEDED
     Route: 048
     Dates: start: 20080820
  15. RHUBARB [Concomitant]
     Indication: CONSTIPATION
     Dosage: 0.5 G, 3X/DAY
     Route: 048
     Dates: start: 20100709

REACTIONS (3)
  - DISEASE PROGRESSION [None]
  - PITUITARY TUMOUR BENIGN [None]
  - VISUAL IMPAIRMENT [None]
